FAERS Safety Report 23178988 (Version 4)
Quarter: 2024Q4

REPORT INFORMATION
  Report Type: Spontaneous
  Country: IN (occurrence: IN)
  Receive Date: 20231113
  Receipt Date: 20241115
  Transmission Date: 20250115
  Serious: Yes (Other)
  Sender: PFIZER
  Company Number: IN-PFIZER INC-PV202200057619

PATIENT
  Age: 69 Year
  Sex: Female

DRUGS (5)
  1. LORLATINIB [Suspect]
     Active Substance: LORLATINIB
     Indication: Lung carcinoma cell type unspecified stage IV
     Dosage: 50 MG
     Route: 048
     Dates: start: 202201
  2. LORLATINIB [Suspect]
     Active Substance: LORLATINIB
     Dosage: 50 MG, 1X/DAY
     Route: 048
     Dates: start: 20220801
  3. LORLATINIB [Suspect]
     Active Substance: LORLATINIB
     Dosage: 100 MG
     Route: 048
     Dates: start: 20220801, end: 20220830
  4. LORLATINIB [Suspect]
     Active Substance: LORLATINIB
     Dosage: 50 MG, 1X/DAY
     Route: 048
  5. ROSUMAC [Concomitant]
     Dosage: UNK, 1X/DAY

REACTIONS (18)
  - Cerebral atrophy [Unknown]
  - Hepatomegaly [Unknown]
  - Blood glucose increased [Unknown]
  - Asthenia [Unknown]
  - Lymphadenopathy [Unknown]
  - Paranasal sinus mucosal hypertrophy [Unknown]
  - Thyroid atrophy [Unknown]
  - Hepatic steatosis [Unknown]
  - Extrarenal pelvis [Unknown]
  - Umbilical hernia [Unknown]
  - Fluid retention [Unknown]
  - Alopecia [Recovered/Resolved]
  - Weight increased [Unknown]
  - Gait disturbance [Unknown]
  - Furuncle [Unknown]
  - Rhinitis allergic [Unknown]
  - Sleep apnoea syndrome [Unknown]
  - Blood cholesterol increased [Unknown]

NARRATIVE: CASE EVENT DATE: 20231031
